FAERS Safety Report 9586644 (Version 1)
Quarter: 2013Q4

REPORT INFORMATION
  Report Type: Spontaneous
  Country: US (occurrence: US)
  Receive Date: 20131003
  Receipt Date: 20131003
  Transmission Date: 20140711
  Serious: Yes (Death, Hospitalization)
  Sender: FDA-Public Use
  Company Number: US-OPTIMER-20130365

PATIENT
  Age: 83 Year
  Sex: Female

DRUGS (1)
  1. FIDAXOMICIN [Suspect]
     Indication: CLOSTRIDIAL INFECTION
     Dosage: UNK

REACTIONS (4)
  - Clostridium difficile infection [Fatal]
  - Abdominal pain [Unknown]
  - Colonic pseudo-obstruction [Unknown]
  - Nausea [Unknown]
